FAERS Safety Report 7913713-1 (Version None)
Quarter: 2011Q4

REPORT INFORMATION
  Report Type: 
  Country: None (occurrence: None)
  Receive Date: 20111115
  Receipt Date: 20111104
  Transmission Date: 20120403
  Serious: Yes (Hospitalization, Other)
  Sender: FDA-Public Use
  Company Number: US-BAYER-2011-018440

PATIENT
  Sex: Female
  Weight: 113 kg

DRUGS (11)
  1. LASIX [Concomitant]
     Dosage: 20 MG, QD
     Route: 048
     Dates: start: 20080320
  2. NIFEREX [Concomitant]
     Dosage: UNK
     Route: 048
     Dates: start: 20061221
  3. PREDNISONE [Concomitant]
     Dosage: UNK
     Route: 048
     Dates: start: 20080311
  4. VITAMIN D [Concomitant]
     Dosage: 50000 U, OW
     Route: 048
     Dates: start: 20081213
  5. YAZ [Suspect]
     Indication: HIDRADENITIS
  6. ACCUTANE [Concomitant]
     Dosage: 40 MG, BID
     Route: 048
     Dates: start: 20090220, end: 20090331
  7. YAZ [Suspect]
     Indication: ACNE
     Dosage: UNK
     Route: 048
     Dates: start: 20090201, end: 20090331
  8. DOXYCYCLINE MONOHYDRATE [Concomitant]
     Dosage: 100 MG, BID
     Route: 048
     Dates: start: 20071113
  9. CEPHALEXIN [Concomitant]
     Dosage: 500 MG, BID
     Route: 048
     Dates: start: 20090323
  10. LEVAQUIN [Concomitant]
     Dosage: 250 MG, QD
     Route: 048
     Dates: start: 20081119
  11. FLEXERIL [Concomitant]
     Dosage: 10 MG, QD
     Route: 048
     Dates: start: 20080212

REACTIONS (4)
  - EMOTIONAL DISTRESS [None]
  - PULMONARY EMBOLISM [None]
  - HAEMORRHAGE [None]
  - PAIN [None]
